FAERS Safety Report 11043794 (Version 1)
Quarter: 2015Q2

REPORT INFORMATION
  Report Type: Report from Study
  Country: US (occurrence: US)
  Receive Date: 20150417
  Receipt Date: 20150417
  Transmission Date: 20150821
  Serious: No
  Sender: FDA-Public Use
  Company Number: US-AMGEN-USASL2015036177

PATIENT
  Age: 61 Year
  Sex: Female

DRUGS (1)
  1. ENBREL [Suspect]
     Active Substance: ETANERCEPT
     Indication: RHEUMATOID ARTHRITIS
     Dosage: 50 MG, QWK
     Route: 065
     Dates: start: 20140710, end: 20150404

REACTIONS (9)
  - Nasal congestion [Recovering/Resolving]
  - Rhinorrhoea [Recovering/Resolving]
  - Wheezing [Recovering/Resolving]
  - Gastrointestinal disorder [Unknown]
  - Sputum discoloured [Recovering/Resolving]
  - Nasal discharge discolouration [Recovering/Resolving]
  - Nasopharyngitis [Recovering/Resolving]
  - Hypersensitivity [Recovering/Resolving]
  - Productive cough [Recovering/Resolving]

NARRATIVE: CASE EVENT DATE: 2015
